FAERS Safety Report 5873582-0 (Version None)
Quarter: 2008Q3

REPORT INFORMATION
  Report Type: 
  Country: None (occurrence: None)
  Receive Date: 20080908
  Receipt Date: 20080826
  Transmission Date: 20090109
  Serious: Yes (Hospitalization)
  Sender: FDA-Public Use
  Company Number: US-BAYER-200832796NA

PATIENT
  Age: 47 Year
  Sex: Male
  Weight: 100 kg

DRUGS (3)
  1. MAGNEVIST [Suspect]
     Indication: NUCLEAR MAGNETIC RESONANCE IMAGING
     Dosage: TOTAL DAILY DOSE: 20 ML  UNIT DOSE: 20 ML
     Route: 042
     Dates: start: 20080826, end: 20080826
  2. BENICAR [Concomitant]
  3. TERAZOSIN HCL [Concomitant]

REACTIONS (10)
  - AGGRESSION [None]
  - BLEPHAROSPASM [None]
  - CONFUSIONAL STATE [None]
  - DYSPNOEA [None]
  - FOAMING AT MOUTH [None]
  - HYPERHIDROSIS [None]
  - LETHARGY [None]
  - MOANING [None]
  - POSTICTAL STATE [None]
  - URINARY INCONTINENCE [None]
